FAERS Safety Report 11264980 (Version 1)
Quarter: 2015Q3

REPORT INFORMATION
  Report Type: Report from Study
  Country: US (occurrence: ES)
  Receive Date: 20150713
  Receipt Date: 20150713
  Transmission Date: 20151125
  Serious: Yes (Death, Other)
  Sender: FDA-Public Use
  Company Number: ES-FRI-1000077971

PATIENT
  Age: 66 Year
  Sex: Male

DRUGS (15)
  1. OMEPRAZOLE. [Concomitant]
     Active Substance: OMEPRAZOLE
  2. EMCONCOR [Concomitant]
     Active Substance: BISOPROLOL FUMARATE
  3. EPLERENONE. [Concomitant]
     Active Substance: EPLERENONE
  4. ROFLUMILAST [Suspect]
     Active Substance: ROFLUMILAST
     Indication: PRODUCT USED FOR UNKNOWN INDICATION
     Dosage: 1 DOSAGE FORM
     Route: 048
     Dates: start: 20120410
  5. SEGURIL [Concomitant]
     Active Substance: FUROSEMIDE
  6. SIMVASTATIN. [Concomitant]
     Active Substance: SIMVASTATIN
  7. DIGOXIN. [Concomitant]
     Active Substance: DIGOXIN
  8. PREDNISONE. [Concomitant]
     Active Substance: PREDNISONE
  9. SINTROM [Concomitant]
     Active Substance: ACENOCOUMAROL
  10. ATROVENT [Concomitant]
     Active Substance: IPRATROPIUM BROMIDE
  11. IDEOS UNIDIA [Concomitant]
  12. PROCORALAN [Concomitant]
     Active Substance: IVABRADINE
  13. HYDRAPRES [Concomitant]
  14. BUDESONIDE. [Concomitant]
     Active Substance: BUDESONIDE
  15. EKLIRA [Concomitant]
     Active Substance: ACLIDINIUM BROMIDE

REACTIONS (2)
  - Cardiac arrest [Fatal]
  - Spirometry abnormal [Unknown]

NARRATIVE: CASE EVENT DATE: 201302
